FAERS Safety Report 6545669-0 (Version None)
Quarter: 2010Q1

REPORT INFORMATION
  Report Type: 
  Country: None (occurrence: None)
  Receive Date: 20100121
  Receipt Date: 20100118
  Transmission Date: 20100710
  Serious: Yes (Hospitalization)
  Sender: FDA-Public Use
  Company Number: GB-WATSON-2010-00546

PATIENT
  Age: 44 Year
  Sex: Male

DRUGS (2)
  1. CLINDAMYCIN HYDROCHLORIDE [Suspect]
     Indication: INFLUENZA
     Dosage: UNK
  2. OSELTAMIVIR [Suspect]
     Indication: INFLUENZA
     Dosage: UNK
     Route: 048

REACTIONS (4)
  - ALANINE AMINOTRANSFERASE INCREASED [None]
  - HYPERNATRAEMIA [None]
  - INTERNATIONAL NORMALISED RATIO INCREASED [None]
  - RENAL FAILURE ACUTE [None]
